FAERS Safety Report 15093388 (Version 1)
Quarter: 2018Q2

REPORT INFORMATION
  Report Type: Spontaneous
  Country: US (occurrence: US)
  Receive Date: 20180629
  Receipt Date: 20180629
  Transmission Date: 20180711
  Serious: No
  Sender: FDA-Public Use
  Company Number: US-BAYER-2018-121892

PATIENT
  Age: 70 Year
  Sex: Female

DRUGS (2)
  1. CLIMARA PRO [Suspect]
     Active Substance: ESTRADIOL\LEVONORGESTREL
     Indication: NIGHT SWEATS
     Dosage: UNK
     Route: 062
  2. CLIMARA PRO [Suspect]
     Active Substance: ESTRADIOL\LEVONORGESTREL
     Indication: HOT FLUSH

REACTIONS (4)
  - Product adhesion issue [None]
  - Drug effect decreased [None]
  - Insomnia [None]
  - Hot flush [None]
